FAERS Safety Report 5505677-5 (Version None)
Quarter: 2007Q4

REPORT INFORMATION
  Report Type: 
  Country: None (occurrence: None)
  Receive Date: 20071102
  Receipt Date: 20071024
  Transmission Date: 20080405
  Serious: Yes (Other)
  Sender: FDA-Public Use
  Company Number: US-PFIZER INC-2007076626

PATIENT
  Sex: Female
  Weight: 60 kg

DRUGS (2)
  1. GENOTROPIN [Suspect]
     Indication: GROWTH HORMONE DEFICIENCY
     Dates: start: 20040601, end: 20070601
  2. GENOTROPIN [Suspect]

REACTIONS (1)
  - BREAST ABSCESS [None]
